FAERS Safety Report 7928201-6 (Version None)
Quarter: 2011Q4

REPORT INFORMATION
  Report Type: 
  Country: None (occurrence: None)
  Receive Date: 20111118
  Receipt Date: 20111114
  Transmission Date: 20120403
  Serious: Yes (Other)
  Sender: FDA-Public Use
  Company Number: GB-JNJFOC-20110609647

PATIENT
  Sex: Male
  Weight: 53.98 kg

DRUGS (10)
  1. NICOTINE [Suspect]
     Indication: SMOKING CESSATION THERAPY
     Route: 062
     Dates: start: 20110101
  2. ALCOHOL [Suspect]
     Indication: PRODUCT USED FOR UNKNOWN INDICATION
     Route: 065
  3. TIOTROPIUM [Concomitant]
     Indication: CHRONIC OBSTRUCTIVE PULMONARY DISEASE
     Dosage: 18 MCG
     Route: 055
     Dates: start: 20080101
  4. NICOTINE [Suspect]
     Route: 062
     Dates: start: 20110101
  5. CETIRIZINE HCL [Concomitant]
     Indication: CHRONIC OBSTRUCTIVE PULMONARY DISEASE
     Route: 048
     Dates: start: 20110901
  6. NICOTINE [Suspect]
     Route: 062
     Dates: start: 20110601, end: 20110601
  7. CARBOCISTEINE [Concomitant]
     Indication: CHRONIC OBSTRUCTIVE PULMONARY DISEASE
     Route: 048
     Dates: start: 20110901
  8. NICOTINE [Suspect]
     Route: 062
     Dates: start: 20110601, end: 20110601
  9. FLUTICASONE PROPIONATE/SALMETEROL [Concomitant]
     Indication: CHRONIC OBSTRUCTIVE PULMONARY DISEASE
     Dosage: INITIATED 3 PLUS YEARS AGO
     Route: 055
  10. VENTOLIN [Concomitant]
     Indication: CHRONIC OBSTRUCTIVE PULMONARY DISEASE
     Dosage: INITIATED 10 PLUS YEARS AGO
     Route: 055

REACTIONS (3)
  - FEELING ABNORMAL [None]
  - HALLUCINATION [None]
  - OVERDOSE [None]
